FAERS Safety Report 9726112 (Version 1)
Quarter: 2013Q4

REPORT INFORMATION
  Report Type: Spontaneous
  Country: US (occurrence: US)
  Receive Date: 20131203
  Receipt Date: 20131203
  Transmission Date: 20140711
  Serious: Yes (Other)
  Sender: FDA-Public Use
  Company Number: US-BAYER-2013-144134

PATIENT
  Age: 42 Year
  Sex: Female

DRUGS (1)
  1. MIRENA [Suspect]
     Indication: CONTRACEPTION
     Dosage: 20 MCG/24HR, CONT
     Route: 015
     Dates: start: 20110929, end: 20131120

REACTIONS (4)
  - Vaginal haemorrhage [Not Recovered/Not Resolved]
  - Vaginal odour [Recovered/Resolved]
  - Abdominal pain lower [Not Recovered/Not Resolved]
  - Unintentional medical device removal [None]
